FAERS Safety Report 15352068 (Version 2)
Quarter: 2019Q2

REPORT INFORMATION
  Report Type: Spontaneous
  Country: FR (occurrence: FR)
  Receive Date: 20180905
  Receipt Date: 20190501
  Transmission Date: 20190711
  Serious: Yes (Hospitalization)
  Sender: FDA-Public Use
  Company Number: FR-PFIZER INC-2018351464

PATIENT
  Age: 77 Year
  Sex: Female

DRUGS (2)
  1. FLUOROURACILE ACCORD [Suspect]
     Active Substance: FLUOROURACIL
     Indication: COLON CANCER
     Dosage: 4104 MG, CYCLIC
     Route: 042
     Dates: start: 20160921, end: 20160921
  2. IRINOTECAN HOSPIRA [Suspect]
     Active Substance: IRINOTECAN
     Indication: COLON CANCER
     Dosage: 308 MG, CYCLIC
     Route: 042
     Dates: start: 20160921, end: 20160921

REACTIONS (1)
  - Chest pain [Recovered/Resolved]

NARRATIVE: CASE EVENT DATE: 20160923
